FAERS Safety Report 15990170 (Version 1)
Quarter: 2019Q1

REPORT INFORMATION
  Report Type: Spontaneous
  Country: GB (occurrence: GB)
  Receive Date: 20190221
  Receipt Date: 20190221
  Transmission Date: 20190418
  Serious: Yes (Other)
  Sender: FDA-Public Use
  Company Number: GB-ELI_LILLY_AND_COMPANY-GB201902008547

PATIENT
  Age: 52 Year
  Sex: Female
  Weight: 66.22 kg

DRUGS (3)
  1. DIAZEPAM. [Concomitant]
     Active Substance: DIAZEPAM
     Indication: PRODUCT USED FOR UNKNOWN INDICATION
     Dosage: 5 MG, UNKNOWN
     Route: 065
  2. MIRTAZAPINE. [Concomitant]
     Active Substance: MIRTAZAPINE
     Indication: PRODUCT USED FOR UNKNOWN INDICATION
     Dosage: 15 MG, UNKNOWN
     Route: 065
  3. OLANZAPINE. [Suspect]
     Active Substance: OLANZAPINE
     Indication: DEPRESSION
     Dosage: 15 MG REDUCED TO 10 MG, DAILY AT NIGHT
     Route: 048
     Dates: start: 20150719, end: 20160320

REACTIONS (3)
  - Akathisia [Recovered/Resolved]
  - Agitated depression [Unknown]
  - Somnolence [Unknown]

NARRATIVE: CASE EVENT DATE: 20150902
